FAERS Safety Report 6745780-5 (Version None)
Quarter: 2010Q2

REPORT INFORMATION
  Report Type: 
  Country: None (occurrence: None)
  Receive Date: 20100528
  Receipt Date: 20100525
  Transmission Date: 20101027
  Serious: Yes (Death)
  Sender: FDA-Public Use
  Company Number: PHHY2010DE32522

PATIENT
  Sex: Male
  Weight: 92 kg

DRUGS (1)
  1. EXFORGE [Suspect]
     Indication: HYPERTENSION
     Dosage: 1 DF (160/10 MG), QD
     Route: 048
     Dates: start: 20070514

REACTIONS (1)
  - NEOPLASM MALIGNANT [None]
